FAERS Safety Report 9860883 (Version 1)
Quarter: 2014Q1

REPORT INFORMATION
  Report Type: Spontaneous
  Country: BR (occurrence: BR)
  Receive Date: 20140202
  Receipt Date: 20140202
  Transmission Date: 20141002
  Serious: No
  Sender: FDA-Public Use
  Company Number: BR-ALLERGAN-1301886US

PATIENT
  Age: 53 Year
  Sex: Female
  Weight: 80 kg

DRUGS (4)
  1. BOTOX [Suspect]
     Indication: SKIN WRINKLING
     Dosage: 2.5 UNITS, SINGLE
     Route: 030
     Dates: start: 20121219, end: 20121219
  2. BOTOX [Suspect]
     Indication: SKIN WRINKLING
     Dosage: 10 UNITS, SINGLE
     Route: 030
     Dates: start: 20121219, end: 20121219
  3. BOTOX [Suspect]
     Indication: SKIN WRINKLING
     Dosage: 32.5 UNITS, SINGLE
     Route: 030
     Dates: start: 20121219, end: 20121219
  4. BOTOX [Suspect]
     Indication: SKIN WRINKLING
     Dosage: 20 UNITS, SINGLE
     Route: 030
     Dates: start: 20121219, end: 20121219

REACTIONS (2)
  - Off label use [Unknown]
  - Drug ineffective [Unknown]
